FAERS Safety Report 4573606-7 (Version None)
Quarter: 2005Q1

REPORT INFORMATION
  Report Type: 
  Country: None (occurrence: None)
  Receive Date: 20050208
  Receipt Date: 20040924
  Transmission Date: 20050727
  Serious: No
  Sender: FDA-Public Use
  Company Number: US-GLAXOSMITHKLINE-A0527300A

PATIENT
  Sex: Female

DRUGS (6)
  1. PAXIL [Suspect]
     Indication: DEPRESSION
     Dosage: 40MG PER DAY
     Route: 048
  2. WELLBUTRIN [Suspect]
     Indication: DEPRESSION
     Dosage: 300MG PER DAY
     Route: 048
     Dates: start: 20040501
  3. BENECOL [Concomitant]
  4. ASPIRIN [Concomitant]
  5. MAXZIDE [Concomitant]
  6. RANITIDINE [Concomitant]

REACTIONS (7)
  - BLOOD CREATININE INCREASED [None]
  - DRUG INEFFECTIVE [None]
  - FATIGUE [None]
  - LETHARGY [None]
  - MALAISE [None]
  - WEIGHT DECREASED [None]
  - WEIGHT INCREASED [None]
